FAERS Safety Report 15705874 (Version 2)
Quarter: 2019Q1

REPORT INFORMATION
  Report Type: Report from Study
  Country: US (occurrence: US)
  Receive Date: 20181210
  Receipt Date: 20190129
  Transmission Date: 20190417
  Serious: Yes (Hospitalization)
  Sender: FDA-Public Use
  Company Number: US-EXELIXIS-CABO-18017471

PATIENT
  Age: 68 Year
  Sex: Female

DRUGS (1)
  1. CABOMETYX [Suspect]
     Active Substance: CABOZANTINIB S-MALATE
     Indication: LUNG NEOPLASM MALIGNANT
     Dosage: 40 MG, UNK
     Dates: start: 201811, end: 201812

REACTIONS (5)
  - Pneumonia [Unknown]
  - Swelling [Unknown]
  - Hypertension [Unknown]
  - Off label use [Unknown]
  - Radiation injury [Unknown]

NARRATIVE: CASE EVENT DATE: 201812
